FAERS Safety Report 4309974-0 (Version None)
Quarter: 2004Q1

REPORT INFORMATION
  Report Type: 
  Country: None (occurrence: None)
  Receive Date: 20040227
  Receipt Date: 20031114
  Transmission Date: 20041129
  Serious: No
  Sender: FDA-Public Use
  Company Number: FABR-10377

PATIENT
  Age: 50 Year
  Sex: Male
  Weight: 72.5755 kg

DRUGS (3)
  1. FABRAZYME [Suspect]
     Dosage: 70 MG Q2WKS IV
     Route: 042
     Dates: start: 20030725
  2. PREVACHOL [Concomitant]
  3. SYNTHROID [Concomitant]

REACTIONS (2)
  - BLOOD PRESSURE DECREASED [None]
  - DIZZINESS [None]
